FAERS Safety Report 9303266 (Version 1)
Quarter: 2013Q2

REPORT INFORMATION
  Report Type: Spontaneous
  Country: US (occurrence: US)
  Receive Date: 20130521
  Receipt Date: 20130521
  Transmission Date: 20140414
  Serious: Yes (Other)
  Sender: FDA-Public Use
  Company Number: US-RB-054070-13

PATIENT
  Sex: Male

DRUGS (3)
  1. MUCINEX DM MAXIMUM STRENGTH [Suspect]
     Route: 048
  2. MUCINEX DM MAXIMUM STRENGTH [Suspect]
     Indication: DRUG DEPENDENCE
     Route: 048
  3. MUCINEX FAST MAX (UNSPECIFIED) [Suspect]
     Indication: DRUG DEPENDENCE
     Route: 048

REACTIONS (6)
  - Drug dependence [Unknown]
  - Abnormal behaviour [Unknown]
  - Balance disorder [Unknown]
  - Somnolence [Unknown]
  - Vomiting [Unknown]
  - Overdose [Unknown]
